FAERS Safety Report 10160371 (Version 5)
Quarter: 2014Q4

REPORT INFORMATION
  Report Type: Report from Study
  Country: DE (occurrence: DE)
  Receive Date: 20140508
  Receipt Date: 20141105
  Transmission Date: 20150528
  Serious: Yes (Hospitalization, Other)
  Sender: FDA-Public Use
  Company Number: DE-GLAXOSMITHKLINE-B0991756A

PATIENT

DRUGS (18)
  1. RANITIC [Concomitant]
     Active Substance: RANITIDINE HYDROCHLORIDE
     Dosage: 21-AUG-2012 - 50 MG13-AUG-2013 - 50 MG25-JUL-2013 - 50 MG26-FEB-2013 - 50 MG22-JAN-2014 - 50 MG[...]
     Dates: start: 20130212
  2. ASPIRIN. [Concomitant]
     Active Substance: ASPIRIN
     Indication: HEADACHE
     Dates: start: 20130310, end: 20130313
  3. FAMPRIDINE [Concomitant]
     Active Substance: DALFAMPRIDINE
     Dates: start: 20120624, end: 20120903
  4. PANTOZOL [Concomitant]
     Active Substance: PANTOPRAZOLE SODIUM
     Indication: PROPHYLAXIS
     Dates: start: 20121214, end: 20121220
  5. FENISTIL [Concomitant]
     Active Substance: DIMETHINDENE
     Indication: PREMEDICATION
     Dosage: 25-JUL-2013 - (4 MG)26-FEB-2013 -(4 MG)05-FEB-2014 -(4 MG)25-JUN-2014 - (4 MG)
     Dates: start: 20130212
  6. PARACETAMOL [Concomitant]
     Active Substance: ACETAMINOPHEN
     Indication: PREMEDICATION
     Dosage: 12-FEB-2013 -(1000 MG)13-AUG-2013 -(1000 MG)21-AUG-2012 -(1000 MG)26-FEB-2013 -(1000 MG)25-JUL-[...]
     Dates: start: 20130212
  7. VITAMIN D3 [Concomitant]
     Active Substance: CHOLECALCIFEROL
     Indication: PROPHYLAXIS
     Dates: start: 20121214, end: 20121220
  8. CETIRIZINE [Concomitant]
     Active Substance: CETIRIZINE HYDROCHLORIDE
     Indication: RHINITIS ALLERGIC
     Dates: start: 20140523
  9. METHYLPREDNISOLONE. [Concomitant]
     Active Substance: METHYLPREDNISOLONE
     Indication: PREMEDICATION
     Dosage: 21-AUG-2012 -(100 MG)JUN-2011 -5 X 1G (CORTISONE PULSE THERAPY) (1 G)JUN-2012 -5 X 2G (CORTISON[...]
     Route: 042
     Dates: start: 20120821
  10. LIORESAL [Concomitant]
     Active Substance: BACLOFEN
     Indication: MULTIPLE SCLEROSIS
     Dates: start: 20121122, end: 20130415
  11. L-THYROXINE [Concomitant]
     Active Substance: LEVOTHYROXINE
     Indication: AUTOIMMUNE THYROIDITIS
     Dates: start: 201001
  12. PREDNISOLUT [Concomitant]
     Active Substance: PREDNISOLONE
     Indication: PREMEDICATION
     Dosage: 12-FEB-2013 - 100 MG13-AUG-2013 - 100 MG25-JUL-2013 - 100 MG26-FEB-2013 - 100 MG22-JAN-2014 - 1[...]
     Dates: start: 20130212
  13. BUPROPION HYDROCHLORIDE. [Suspect]
     Active Substance: BUPROPION HYDROCHLORIDE
     Indication: DISTURBANCE IN ATTENTION
     Route: 065
     Dates: start: 20130729, end: 20140109
  14. PLACEBO [Suspect]
     Active Substance: UNSPECIFIED INGREDIENT
     Indication: MULTIPLE SCLEROSIS
     Route: 042
     Dates: start: 20121108
  15. URBASON [Concomitant]
     Active Substance: METHYLPREDNISOLONE
     Indication: MULTIPLE SCLEROSIS
     Dates: start: 201106
  16. BELOC [Concomitant]
     Active Substance: METOPROLOL TARTRATE
     Indication: TACHYCARDIA
  17. BELOC-ZOK [Concomitant]
     Active Substance: METOPROLOL SUCCINATE
     Indication: TACHYCARDIA
  18. BACLOFEN. [Concomitant]
     Active Substance: BACLOFEN
     Indication: MUSCLE SPASMS
     Dosage: 10MAY2013 TO 04FEB2014 SUBJECT RECEIVED 30MG.05FEB2014 ONWARDS SUBJECT RECEIVED 25MG
     Dates: start: 20130510

REACTIONS (1)
  - Urinary retention [Recovered/Resolved]

NARRATIVE: CASE EVENT DATE: 20140110
